FAERS Safety Report 5611710-2 (Version None)
Quarter: 2008Q1

REPORT INFORMATION
  Report Type: 
  Country: None (occurrence: None)
  Receive Date: 20080201
  Receipt Date: 20080125
  Transmission Date: 20080703
  Serious: Yes (Hospitalization)
  Sender: FDA-Public Use
  Company Number: US-MERCK-0801USA05809

PATIENT
  Age: 77 Year
  Sex: Female

DRUGS (1)
  1. HYDRODIURIL [Suspect]
     Route: 048

REACTIONS (2)
  - HYPOTENSION [None]
  - STRESS [None]
